FAERS Safety Report 4555759-X (Version None)
Quarter: 2005Q1

REPORT INFORMATION
  Report Type: 
  Country: None (occurrence: None)
  Receive Date: 20050119
  Receipt Date: 20041005
  Transmission Date: 20050727
  Serious: Yes (Hospitalization)
  Sender: FDA-Public Use
  Company Number: 200419948GDDC

PATIENT
  Age: 63 Year
  Sex: Male

DRUGS (4)
  1. LANTUS [Suspect]
     Indication: DIABETES MELLITUS NON-INSULIN-DEPENDENT
     Route: 058
     Dates: start: 20040601
  2. METFORMIN HCL [Concomitant]
     Route: 048
  3. ASPIRIN [Concomitant]
  4. BISOPROLOL FUMARATE [Concomitant]

REACTIONS (5)
  - INJECTION SITE PAIN [None]
  - OEDEMA PERIPHERAL [None]
  - PAIN IN EXTREMITY [None]
  - PHLEBITIS [None]
  - PRURITUS [None]
